FAERS Safety Report 25373311 (Version 1)
Quarter: 2025Q2

REPORT INFORMATION
  Report Type: Spontaneous
  Country: US (occurrence: US)
  Receive Date: 20250529
  Receipt Date: 20250529
  Transmission Date: 20250716
  Serious: No
  Sender: CIPLA
  Company Number: US-CIPLA LTD.-2024US08349

PATIENT

DRUGS (11)
  1. ALBUTEROL [Suspect]
     Active Substance: ALBUTEROL
     Indication: Emphysema
     Route: 065
  2. ALBUTEROL [Suspect]
     Active Substance: ALBUTEROL
     Indication: Chronic obstructive pulmonary disease
     Route: 065
     Dates: start: 20240701
  3. FUROSEMIDE [Concomitant]
     Active Substance: FUROSEMIDE
     Indication: Ischaemic heart disease prophylaxis
     Dosage: 20 MILLIGRAM, QD, (20 MG/ONCE DAILY)
     Route: 065
     Dates: start: 202310
  4. ATORVASTATIN [Concomitant]
     Active Substance: ATORVASTATIN
     Indication: Blood cholesterol
     Dosage: 40 MILLIGRAM, QD (40 MG/ ONCE DAILY)
     Route: 065
     Dates: start: 201509
  5. METOPROLOL [Concomitant]
     Active Substance: METOPROLOL
     Indication: Ischaemic heart disease prophylaxis
     Dosage: 25 MILLIGRAM, QD, (20 MG/ONCE DAILY)
     Route: 065
     Dates: start: 202310
  6. ASPIRIN [Concomitant]
     Active Substance: ASPIRIN
     Indication: Cerebrovascular accident
     Dosage: 81 MILLIGRAM, QD, (81 MG /ONCE DAILY)
     Route: 065
     Dates: start: 202310
  7. SYMBICORT [Concomitant]
     Active Substance: BUDESONIDE\FORMOTEROL FUMARATE DIHYDRATE
     Indication: Chronic obstructive pulmonary disease
     Dosage: 4 PUFFS, QD (ONCE DAILY)
     Route: 065
     Dates: start: 201509
  8. ALBUTEROL [Concomitant]
     Active Substance: ALBUTEROL
     Indication: Chronic obstructive pulmonary disease
     Route: 065
  9. ISOSORBIDE MONONITRATE [Concomitant]
     Active Substance: ISOSORBIDE MONONITRATE
     Indication: Ischaemic heart disease prophylaxis
     Dosage: 30 MILLIGRAM, QD (30 MG/ONCE DAILY)
     Route: 065
     Dates: start: 202310
  10. SPIRONOLACTONE [Concomitant]
     Active Substance: SPIRONOLACTONE
     Indication: Ischaemic heart disease prophylaxis
     Dosage: 24 MG-HALF A TABLET/ ONCE DAILY
     Route: 065
     Dates: start: 202310
  11. CLOPIDOGREL [Concomitant]
     Active Substance: CLOPIDOGREL BISULFATE
     Indication: Cerebrovascular accident
     Dosage: 75 MILLIGRAM, QD (ONCE DAILY)
     Route: 065
     Dates: start: 201509

REACTIONS (3)
  - Drug ineffective for unapproved indication [Unknown]
  - Off label use [Unknown]
  - Device delivery system issue [Unknown]

NARRATIVE: CASE EVENT DATE: 20240722
